FAERS Safety Report 13868490 (Version 2)
Quarter: 2017Q3

REPORT INFORMATION
  Report Type: Spontaneous
  Country: JP (occurrence: JP)
  Receive Date: 20170815
  Receipt Date: 20170905
  Transmission Date: 20171127
  Serious: Yes (Hospitalization, Disabling, Other)
  Sender: FDA-Public Use
  Company Number: JP-UCBSA-2017031442

PATIENT
  Age: 28 Year
  Sex: Female

DRUGS (2)
  1. FAMOTIDINE. [Concomitant]
     Active Substance: FAMOTIDINE
     Indication: PRODUCT USED FOR UNKNOWN INDICATION
     Dosage: 20 MG, ONCE DAILY (QD)
  2. XYZAL [Suspect]
     Active Substance: LEVOCETIRIZINE DIHYDROCHLORIDE
     Indication: URTICARIA CHRONIC
     Dosage: 10 MG, ONCE DAILY (QD)
     Route: 048
     Dates: start: 20170128, end: 20170623

REACTIONS (4)
  - Diabetes mellitus inadequate control [Unknown]
  - Fulminant type 1 diabetes mellitus [Not Recovered/Not Resolved]
  - Pancreatitis acute [Recovered/Resolved with Sequelae]
  - Abdominal pain upper [Unknown]

NARRATIVE: CASE EVENT DATE: 20170624
